FAERS Safety Report 6868426-4 (Version None)
Quarter: 2010Q3

REPORT INFORMATION
  Report Type: 
  Country: None (occurrence: None)
  Receive Date: 20100722
  Receipt Date: 20080528
  Transmission Date: 20110219
  Serious: No
  Sender: FDA-Public Use
  Company Number: US-PFIZER INC-2008046537

PATIENT
  Sex: Male
  Weight: 79.92 kg

DRUGS (5)
  1. CHANTIX [Suspect]
     Indication: SMOKING CESSATION THERAPY
     Dates: start: 20080501
  2. SAW PALMETTO [Concomitant]
     Indication: PROSTATIC DISORDER
  3. VITAMINS [Concomitant]
     Indication: MACULAR DEGENERATION
  4. LISINOPRIL [Concomitant]
  5. PROZAC [Concomitant]

REACTIONS (2)
  - DRY MOUTH [None]
  - DYSPEPSIA [None]
